FAERS Safety Report 5018852-3 (Version None)
Quarter: 2006Q2

REPORT INFORMATION
  Report Type: 
  Country: None (occurrence: None)
  Receive Date: 20060530
  Receipt Date: 20050722
  Transmission Date: 20061013
  Serious: Yes (Hospitalization)
  Sender: FDA-Public Use
  Company Number: 2005105762

PATIENT
  Age: 81 Year
  Sex: Female
  Weight: 88 kg

DRUGS (8)
  1. LYRICA [Suspect]
     Indication: POST HERPETIC NEURALGIA
     Dosage: 150 MG (75 MG, 2 IN 1 D), ORAL
     Route: 048
     Dates: start: 20050504, end: 20050701
  2. GLADEM (SERTRALINE) [Concomitant]
  3. PLAVIX [Concomitant]
  4. DIOVAN HCT [Concomitant]
  5. AULIN (NIMESULIDE) [Concomitant]
  6. LOFTYL (BUFLOMEDIL HYDROCHLORIDE) [Concomitant]
  7. NOVALGIN (METAMIZOL SODIUM) [Concomitant]
  8. LOSEC (OMEPRAZOLE) [Concomitant]

REACTIONS (1)
  - RHABDOMYOLYSIS [None]
